FAERS Safety Report 9700855 (Version 1)
Quarter: 2013Q4

REPORT INFORMATION
  Report Type: Spontaneous
  Country: US (occurrence: US)
  Receive Date: 20131121
  Receipt Date: 20131121
  Transmission Date: 20140711
  Serious: No
  Sender: FDA-Public Use
  Company Number: US-PFIZER INC-2013330468

PATIENT
  Age: 67 Year
  Sex: Female
  Weight: 88.44 kg

DRUGS (3)
  1. AMLODIPINE BESILATE [Suspect]
     Indication: HYPERTENSION
     Dosage: 5 MG, UNK
  2. PREDNISONE [Concomitant]
     Dosage: UNK
  3. OMEGA-3 [Concomitant]
     Dosage: UNK

REACTIONS (1)
  - Blood pressure fluctuation [Unknown]
